FAERS Safety Report 16112551 (Version 1)
Quarter: 2019Q1

REPORT INFORMATION
  Report Type: Spontaneous
  Country: US (occurrence: US)
  Receive Date: 20190219
  Receipt Date: 20190219
  Transmission Date: 20190418
  Serious: Yes (Hospitalization)
  Sender: FDA-Public Use
  Company Number: None

PATIENT
  Sex: Female

DRUGS (1)
  1. ZOOBY (SODIUM FLUORIDE) [Suspect]
     Active Substance: SODIUM FLUORIDE
     Indication: DENTAL FLUORIDE THERAPY
     Dosage: ?          QUANTITY:1 TOPICAL APPLICATIO;OTHER FREQUENCY:ONE TIME;?
     Route: 048
     Dates: start: 20190131, end: 20190131

REACTIONS (1)
  - Anaphylactic shock [None]
